FAERS Safety Report 9861837 (Version 1)
Quarter: 2014Q1

REPORT INFORMATION
  Report Type: Spontaneous
  Country: US (occurrence: US)
  Receive Date: 20140203
  Receipt Date: 20140203
  Transmission Date: 20141002
  Serious: No
  Sender: FDA-Public Use
  Company Number: US-PFIZER INC-2014027486

PATIENT
  Sex: Female

DRUGS (2)
  1. PROCARDIA XL [Suspect]
     Dosage: UNK
  2. PROCARDIA [Suspect]
     Dosage: UNK

REACTIONS (7)
  - Drug ineffective [Unknown]
  - Rash [Unknown]
  - Rash [Unknown]
  - Pruritus [Unknown]
  - Insomnia [Unknown]
  - Pollakiuria [Unknown]
  - Hypersensitivity [Unknown]
